FAERS Safety Report 14773576 (Version 1)
Quarter: 2018Q2

REPORT INFORMATION
  Report Type: Report from Study
  Country: MX (occurrence: MX)
  Receive Date: 20180418
  Receipt Date: 20180418
  Transmission Date: 20180711
  Serious: Yes (Death, Life-Threatening, Hospitalization, Other)
  Sender: FDA-Public Use
  Company Number: PHHY2018MX047429

PATIENT
  Age: 48 Year
  Sex: Female
  Weight: 76 kg

DRUGS (1)
  1. EXJADE [Suspect]
     Active Substance: DEFERASIROX
     Indication: PRODUCT USED FOR UNKNOWN INDICATION
     Dosage: 1500 MG, QD (EVERY 24 HRS)
     Route: 048
     Dates: start: 20170222, end: 20180401

REACTIONS (12)
  - Aplastic anaemia [Fatal]
  - Loss of consciousness [Recovered/Resolved]
  - Haemoglobin decreased [Recovered/Resolved]
  - Soft tissue infection [Fatal]
  - Respiratory arrest [Unknown]
  - Somnolence [Fatal]
  - Varicose ulceration [Fatal]
  - Decubitus ulcer [Fatal]
  - Platelet count decreased [Recovered/Resolved]
  - Headache [Fatal]
  - Pyrexia [Fatal]
  - Cardiac arrest [Unknown]

NARRATIVE: CASE EVENT DATE: 20180303
